FAERS Safety Report 16843166 (Version 1)
Quarter: 2019Q3

REPORT INFORMATION
  Report Type: Spontaneous
  Country: US (occurrence: US)
  Receive Date: 20190924
  Receipt Date: 20190924
  Transmission Date: 20191005
  Serious: No
  Sender: FDA-Public Use
  Company Number: US-ALLERGAN-1905323US

PATIENT
  Age: 70 Year
  Sex: Female

DRUGS (4)
  1. RAZAPAM [Suspect]
     Active Substance: UNSPECIFIED INGREDIENT
     Dosage: UNK
     Route: 065
  2. PREMPRO [Suspect]
     Active Substance: ESTROGENS, CONJUGATED\MEDROXYPROGESTERONE ACETATE
     Dosage: UNK
     Route: 065
  3. XANAX [Suspect]
     Active Substance: ALPRAZOLAM
     Indication: ANXIETY
     Dosage: UNK
     Route: 065
  4. ESCITALOPRAM OXALATE - BP [Suspect]
     Active Substance: ESCITALOPRAM OXALATE
     Indication: ANXIETY DISORDER
     Dosage: UNK
     Route: 065

REACTIONS (6)
  - Chills [Unknown]
  - Depressed mood [Unknown]
  - Drug ineffective [Unknown]
  - Haemorrhage [Unknown]
  - Weight decreased [Unknown]
  - Decreased appetite [Unknown]
